FAERS Safety Report 9058297 (Version 1)
Quarter: 2013Q1

REPORT INFORMATION
  Report Type: Spontaneous
  Country: FR (occurrence: FR)
  Receive Date: 20130211
  Receipt Date: 20130211
  Transmission Date: 20140127
  Serious: Yes (Hospitalization, Other)
  Sender: FDA-Public Use
  Company Number: FR-JNJFOC-20130201131

PATIENT
  Age: 82 None
  Sex: Female
  Weight: 90 kg

DRUGS (6)
  1. XARELTO [Suspect]
     Indication: VENA CAVA THROMBOSIS
     Route: 048
     Dates: start: 20121228, end: 20130107
  2. XARELTO [Suspect]
     Indication: DEEP VEIN THROMBOSIS
     Route: 048
     Dates: start: 20121228, end: 20130107
  3. HYDROCORTISONE [Concomitant]
     Indication: ANAEMIA
     Route: 065
  4. AMIODARONE [Concomitant]
     Route: 065
  5. EXELON [Concomitant]
     Route: 065
  6. OMEPRAZOLE [Concomitant]
     Route: 065

REACTIONS (2)
  - Deep vein thrombosis [Unknown]
  - Drug ineffective [Unknown]
